FAERS Safety Report 13512717 (Version 1)
Quarter: 2017Q2

REPORT INFORMATION
  Report Type: Spontaneous
  Country: US (occurrence: US)
  Receive Date: 20170504
  Receipt Date: 20170504
  Transmission Date: 20170830
  Serious: Yes (Other)
  Sender: FDA-Public Use
  Company Number: None

PATIENT
  Age: 68 Year
  Sex: Female
  Weight: 54.48 kg

DRUGS (10)
  1. VALTREX [Suspect]
     Active Substance: VALACYCLOVIR HYDROCHLORIDE
     Indication: GENITAL HERPES
     Dosage: 1 PILL ONCE A DAY MOUTH
     Route: 048
     Dates: start: 20090707, end: 20161216
  2. ALIVE MULTIVITAMIN [Concomitant]
  3. BUPROPION. [Concomitant]
     Active Substance: BUPROPION
  4. JUVENON [Concomitant]
  5. COMPLETE B [Concomitant]
  6. VALACYCLOVIR [Suspect]
     Active Substance: VALACYCLOVIR HYDROCHLORIDE
  7. OMEGA 3 [Concomitant]
     Active Substance: OMEGA-3 FATTY ACIDS
  8. LEVOTHYROXIN [Concomitant]
     Active Substance: LEVOTHYROXINE
  9. VITAMIN C [Concomitant]
     Active Substance: ASCORBIC ACID
  10. KRILL OIL [Concomitant]
     Active Substance: DIETARY SUPPLEMENT

REACTIONS (9)
  - Depression [None]
  - Anxiety [None]
  - Feeling abnormal [None]
  - Anger [None]
  - Thinking abnormal [None]
  - Abnormal behaviour [None]
  - Nervous system disorder [None]
  - Paranoia [None]
  - Psychotic disorder [None]

NARRATIVE: CASE EVENT DATE: 20090707
